FAERS Safety Report 4455687-4 (Version None)
Quarter: 2004Q3

REPORT INFORMATION
  Report Type: 
  Country: None (occurrence: None)
  Receive Date: 20040917
  Receipt Date: 20040909
  Transmission Date: 20050211
  Serious: Yes (Death, Hospitalization)
  Sender: FDA-Public Use
  Company Number: 2004232669ES

PATIENT
  Age: 80 Year
  Sex: Female
  Weight: 76 kg

DRUGS (5)
  1. DETRUSITOL (TOLTERODINE) CAPSULE, PROLONGED RELEASE [Suspect]
     Indication: URINARY INCONTINENCE
     Dosage: 4 MG, QD, ORAL
     Route: 048
  2. CAPTOPRIL AND HYDROCHLOROTHIAZIDE [Concomitant]
  3. SUTRIL [Concomitant]
  4. HEMOVAS [Concomitant]
  5. ESBERIVEN (MELILOT)SOLUTION [Concomitant]

REACTIONS (5)
  - ABDOMINAL HERNIA [None]
  - BLADDER DISORDER [None]
  - CATHETER RELATED COMPLICATION [None]
  - INTESTINAL OBSTRUCTION [None]
  - URINARY RETENTION [None]
